FAERS Safety Report 9891098 (Version 2)
Quarter: 2014Q1

REPORT INFORMATION
  Report Type: Other
  Country: US (occurrence: US)
  Receive Date: 20140212
  Receipt Date: 20140212
  Transmission Date: 20141002
  Serious: No
  Sender: FDA-Public Use
  Company Number: US-ACORDA-ACO_38865_2013

PATIENT
  Sex: Female
  Weight: 58.96 kg

DRUGS (8)
  1. AMPYRA [Suspect]
     Indication: MULTIPLE SCLEROSIS
     Dosage: 10 MG, BID
     Route: 048
     Dates: start: 20120107
  2. AMPYRA [Suspect]
     Indication: MUSCLE SPASTICITY
  3. BACLOFEN [Concomitant]
     Indication: MUSCLE SPASTICITY
     Dosage: 10 MG, BID
     Route: 048
  4. CELEXA [Concomitant]
     Indication: DEPRESSION
     Dosage: 20 MG, QD
     Route: 048
  5. NORTRIPTYLINE HCL [Concomitant]
     Indication: HEADACHE
     Dosage: 75 MG, QD
     Route: 048
  6. REBIF [Concomitant]
     Indication: MULTIPLE SCLEROSIS
     Dosage: 44 MG, 3 TIMES A WEEK
     Route: 058
  7. TIZANIDINE [Concomitant]
     Indication: MULTIPLE SCLEROSIS
     Dosage: 4 MG, TID
     Route: 048
  8. TIZANIDINE [Concomitant]
     Indication: MUSCLE SPASTICITY

REACTIONS (1)
  - Paraesthesia [Unknown]
